FAERS Safety Report 4336684-6 (Version None)
Quarter: 2004Q2

REPORT INFORMATION
  Report Type: 
  Country: None (occurrence: None)
  Receive Date: 20040408
  Receipt Date: 20040401
  Transmission Date: 20050107
  Serious: Yes (Other)
  Sender: FDA-Public Use
  Company Number: 2004204623US

PATIENT
  Age: 56 Year
  Sex: Female

DRUGS (6)
  1. CELEBREX [Suspect]
     Indication: ARTHRALGIA
     Dosage: 200 MG, QD
     Dates: start: 20040301
  2. CALCIUM [Concomitant]
  3. VITAMIN B-12 [Concomitant]
  4. VITA-ADVANCE [Concomitant]
  5. TOPROL-XL [Concomitant]
  6. ASPIRIN [Concomitant]

REACTIONS (2)
  - AMENORRHOEA [None]
  - HAEMORRHAGE [None]
